FAERS Safety Report 14778316 (Version 12)
Quarter: 2019Q1

REPORT INFORMATION
  Report Type: Spontaneous
  Country: US (occurrence: US)
  Receive Date: 20180419
  Receipt Date: 20190225
  Transmission Date: 20190417
  Serious: Yes (Other)
  Sender: FDA-Public Use
  Company Number: US-BRISTOL-MYERS SQUIBB COMPANY-BMS-2018-036224

PATIENT
  Sex: Female

DRUGS (1)
  1. ORENCIA [Suspect]
     Active Substance: ABATACEPT
     Indication: RHEUMATOID ARTHRITIS
     Dosage: 125 MG, QWK
     Route: 058
     Dates: start: 201803

REACTIONS (13)
  - Sinusitis [Unknown]
  - Arthralgia [Recovering/Resolving]
  - Injection site reaction [Unknown]
  - Injection site pain [Unknown]
  - Kidney infection [Unknown]
  - Blood glucose increased [Unknown]
  - Pain in extremity [Unknown]
  - Fungal infection [Unknown]
  - Pain [Unknown]
  - Drug ineffective [Unknown]
  - Malaise [Unknown]
  - Nasopharyngitis [Unknown]
  - Cystitis [Unknown]
